FAERS Safety Report 4856211-4 (Version None)
Quarter: 2005Q4

REPORT INFORMATION
  Report Type: 
  Country: None (occurrence: None)
  Receive Date: 20051216
  Receipt Date: 20051202
  Transmission Date: 20060501
  Serious: Yes (Death, Hospitalization)
  Sender: FDA-Public Use
  Company Number: US-AMGEN-US160082

PATIENT
  Sex: Male

DRUGS (23)
  1. ENBREL [Suspect]
     Indication: LUNG DISORDER
     Route: 058
     Dates: start: 20050916, end: 20051122
  2. LOVENOX [Concomitant]
     Route: 058
  3. TACROLIMUS [Concomitant]
     Route: 048
  4. PRILOSEC [Concomitant]
     Route: 065
  5. FOLIC ACID [Concomitant]
     Route: 048
  6. OLANZAPINE [Concomitant]
     Route: 048
  7. AZITHROMYCIN [Concomitant]
  8. COLACE [Concomitant]
     Route: 048
  9. MULTIVITAMIN [Concomitant]
     Route: 048
  10. ZINC [Concomitant]
     Route: 048
  11. ASCORBIC ACID [Concomitant]
     Route: 048
  12. PENICILLIN VK [Concomitant]
     Route: 048
  13. ADVAIR DISKUS 250/50 [Concomitant]
     Route: 055
  14. ACYCLOVIR [Concomitant]
     Route: 048
  15. VORICONAZOLE [Concomitant]
     Route: 048
  16. ERYTHROMYCIN [Concomitant]
     Route: 047
  17. ALBUTEROL + IPRATROPIUM INHALER [Concomitant]
     Route: 055
  18. KEFLEX [Concomitant]
     Route: 048
  19. ROBITUSSIN [Concomitant]
     Route: 048
  20. OXYGEN [Concomitant]
     Route: 055
  21. OSCAL [Concomitant]
     Route: 048
  22. DAPSONE [Concomitant]
     Route: 048
  23. REFRESH [Concomitant]
     Route: 047

REACTIONS (7)
  - CONDITION AGGRAVATED [None]
  - DEEP VEIN THROMBOSIS [None]
  - LUNG DISORDER [None]
  - OEDEMA PERIPHERAL [None]
  - PLEURAL EFFUSION [None]
  - PNEUMONIA [None]
  - RESPIRATORY DISTRESS [None]
